FAERS Safety Report 4964124-2 (Version None)
Quarter: 2006Q1

REPORT INFORMATION
  Report Type: 
  Country: None (occurrence: None)
  Receive Date: 20060330
  Receipt Date: 20060317
  Transmission Date: 20060701
  Serious: Yes (Other)
  Sender: FDA-Public Use
  Company Number: HQWYE043928FEB06

PATIENT
  Sex: Female

DRUGS (1)
  1. EFFEXOR XR [Suspect]

REACTIONS (2)
  - DRUG WITHDRAWAL SYNDROME [None]
  - SUICIDE ATTEMPT [None]
